FAERS Safety Report 12991344 (Version 1)
Quarter: 2016Q4

REPORT INFORMATION
  Report Type: Spontaneous
  Country: US (occurrence: US)
  Receive Date: 20161201
  Receipt Date: 20161201
  Transmission Date: 20170207
  Serious: No
  Sender: FDA-Public Use
  Company Number: US-LUNDBECK-DKLU2022295

PATIENT
  Sex: Male

DRUGS (1)
  1. SABRIL [Suspect]
     Active Substance: VIGABATRIN
     Indication: PRODUCT USED FOR UNKNOWN INDICATION
     Dosage: 5 ML
     Route: 065

REACTIONS (2)
  - Poor feeding infant [Unknown]
  - Hypersomnia [Unknown]
